FAERS Safety Report 4277813-2 (Version None)
Quarter: 2004Q1

REPORT INFORMATION
  Report Type: 
  Country: None (occurrence: None)
  Receive Date: 20040121
  Receipt Date: 20040112
  Transmission Date: 20041129
  Serious: Yes (Hospitalization)
  Sender: FDA-Public Use
  Company Number: TPG2004A00011

PATIENT
  Age: 77 Year
  Sex: Female

DRUGS (4)
  1. ACTOS [Suspect]
     Dosage: 30 MG (30 MG, 1 IN 1 D); PER ORAL
     Route: 048
     Dates: start: 20030702
  2. AMARYL [Concomitant]
  3. GLUCOPHAGE [Concomitant]
  4. INDERAL [Concomitant]

REACTIONS (1)
  - PANCREATITIS [None]
